FAERS Safety Report 8343930-0 (Version None)
Quarter: 2012Q1

REPORT INFORMATION
  Report Type: 
  Country: None (occurrence: None)
  Receive Date: 20120330
  Receipt Date: 20110407
  Transmission Date: 20120608
  Serious: Yes (Other)
  Sender: FDA-Public Use
  Company Number: PHHY2011US28720

PATIENT
  Sex: Male

DRUGS (4)
  1. CARBIDOPA W/LEVODOPA (CARBIDOPA, LEVODOPA) [Concomitant]
  2. EYE DROPS (TETRYZOLINE HYDROCHLORIDE) [Concomitant]
  3. EXELON [Suspect]
     Indication: PARKINSON'S DISEASE
  4. HYDROCHLOROTHIAZIDE [Concomitant]

REACTIONS (5)
  - DEPRESSION [None]
  - NIGHTMARE [None]
  - CONFUSIONAL STATE [None]
  - INSOMNIA [None]
  - SOMNOLENCE [None]
